FAERS Safety Report 9385687 (Version 2)
Quarter: 2013Q3

REPORT INFORMATION
  Report Type: Spontaneous
  Country: JP (occurrence: JP)
  Receive Date: 20130705
  Receipt Date: 20130711
  Transmission Date: 20140515
  Serious: No
  Sender: FDA-Public Use
  Company Number: JP-PFIZER INC-2013191683

PATIENT
  Age: 8 Decade
  Sex: Female

DRUGS (1)
  1. ZYVOX [Suspect]

REACTIONS (1)
  - No adverse event [Unknown]
